FAERS Safety Report 20700742 (Version 1)
Quarter: 2022Q2

REPORT INFORMATION
  Report Type: Spontaneous
  Country: US (occurrence: US)
  Receive Date: 20220412
  Receipt Date: 20220412
  Transmission Date: 20220721
  Serious: No
  Sender: FDA-Public Use
  Company Number: US-PFIZER INC-202200185896

PATIENT
  Age: 68 Year
  Sex: Female
  Weight: 75.3 kg

DRUGS (3)
  1. IBRANCE [Suspect]
     Active Substance: PALBOCICLIB
     Indication: Breast cancer stage IV
     Dosage: 125 MG, CYCLIC (DAILY FOR 21 DAYS AND 7 DAYS OFF)
     Route: 048
     Dates: start: 202201
  2. IBRANCE [Suspect]
     Active Substance: PALBOCICLIB
     Indication: Breast cancer metastatic
     Dosage: 100 MG
     Dates: start: 202203
  3. NORCO [Suspect]
     Active Substance: ACETAMINOPHEN\HYDROCODONE BITARTRATE
     Indication: Pain
     Dosage: 5 MG, AS NEEDED
     Route: 048
     Dates: end: 202202

REACTIONS (4)
  - Nausea [Recovered/Resolved]
  - Asthenia [Recovering/Resolving]
  - Fatigue [Recovering/Resolving]
  - Full blood count decreased [Not Recovered/Not Resolved]

NARRATIVE: CASE EVENT DATE: 20220101
